FAERS Safety Report 4510729-2 (Version None)
Quarter: 2004Q4

REPORT INFORMATION
  Report Type: 
  Country: None (occurrence: None)
  Receive Date: 20041025
  Receipt Date: 20040310
  Transmission Date: 20050328
  Serious: Yes (Hospitalization)
  Sender: FDA-Public Use
  Company Number: US-JNJFOC-20040204583

PATIENT
  Age: 35 Year
  Sex: Male
  Weight: 83.4619 kg

DRUGS (9)
  1. REMICADE [Suspect]
     Indication: ANKYLOSING SPONDYLITIS
     Dosage: 300 MG, INTRAVENOUS
     Route: 042
     Dates: start: 20040202, end: 20040202
  2. REMICADE [Suspect]
     Indication: ANKYLOSING SPONDYLITIS
     Dosage: 300 MG, INTRAVENOUS
     Route: 042
     Dates: start: 20031124
  3. NAPROSYN [Concomitant]
  4. INDOMETHACIN [Concomitant]
  5. PREDNISONE [Concomitant]
  6. HISTUSSIN (HISTUSSIN D) [Concomitant]
  7. TEQUIN [Concomitant]
  8. ZEPHREX LA (RESPAIRE-SR-120) [Concomitant]
  9. ZYRTEC [Concomitant]

REACTIONS (2)
  - HEADACHE [None]
  - MENINGITIS ASEPTIC [None]
